FAERS Safety Report 8303742-0 (Version None)
Quarter: 2012Q2

REPORT INFORMATION
  Report Type: 
  Country: None (occurrence: None)
  Receive Date: 20120418
  Receipt Date: 20110411
  Transmission Date: 20120825
  Serious: No
  Sender: FDA-Public Use
  Company Number: AEUSA201100094

PATIENT
  Age: 61 Year
  Sex: Female

DRUGS (6)
  1. ATROVENT [Concomitant]
  2. PROLASTIN-C [Suspect]
     Indication: BRONCHIECTASIS
     Dosage: 3440 MG;QW;IV
     Route: 042
     Dates: start: 20100601
  3. PROLASTIN-C [Suspect]
     Indication: EMPHYSEMA
     Dosage: 3440 MG;QW;IV
     Route: 042
     Dates: start: 20100601
  4. KLONOPIN [Concomitant]
  5. NEBIVOLOL [Suspect]
     Indication: BLOOD PRESSURE INCREASED
     Dates: start: 20110301, end: 20110101
  6. NEBIVOLOL [Suspect]
     Indication: HEART RATE INCREASED
     Dates: start: 20110301, end: 20110101

REACTIONS (7)
  - PRODUCT QUALITY ISSUE [None]
  - NERVOUSNESS [None]
  - VASCULITIS [None]
  - SELF-MEDICATION [None]
  - HEART RATE INCREASED [None]
  - STRESS [None]
  - BLOOD PRESSURE INCREASED [None]
